FAERS Safety Report 4791191-1 (Version None)
Quarter: 2005Q4

REPORT INFORMATION
  Report Type: 
  Country: None (occurrence: None)
  Receive Date: 20051005
  Receipt Date: 20050901
  Transmission Date: 20060501
  Serious: No
  Sender: FDA-Public Use
  Company Number: 2005RR-00690

PATIENT

DRUGS (2)
  1. ASPIRIN [Suspect]
     Indication: CEREBROVASCULAR ACCIDENT PROPHYLAXIS
  2. DIPYRIDAMOLE [Concomitant]

REACTIONS (2)
  - DRUG INEFFECTIVE [None]
  - ISCHAEMIC STROKE [None]
